FAERS Safety Report 5266747-2 (Version None)
Quarter: 2007Q1

REPORT INFORMATION
  Report Type: 
  Country: None (occurrence: None)
  Receive Date: 20070315
  Receipt Date: 20070308
  Transmission Date: 20070707
  Serious: Yes (Hospitalization, Other)
  Sender: FDA-Public Use
  Company Number: JP-ABBOTT-07P-087-0361527-00

PATIENT
  Age: 11 Year
  Sex: Female
  Weight: 28 kg

DRUGS (2)
  1. CLARITH DRY SYRUP [Suspect]
     Indication: PNEUMONIA MYCOPLASMAL
     Route: 048
     Dates: start: 20061216, end: 20061217
  2. CALONAL [Suspect]
     Indication: PYREXIA
     Route: 048
     Dates: start: 20061216, end: 20061217

REACTIONS (14)
  - ASTHMA [None]
  - BLISTER [None]
  - BLOOD ALBUMIN DECREASED [None]
  - DISSEMINATED INTRAVASCULAR COAGULATION [None]
  - DYSPNOEA [None]
  - ERYTHEMA [None]
  - HEPATIC FUNCTION ABNORMAL [None]
  - PYREXIA [None]
  - RASH [None]
  - RESPIRATORY DISTRESS [None]
  - RESPIRATORY FAILURE [None]
  - SKIN EROSION [None]
  - TACHYPNOEA [None]
  - TOXIC EPIDERMAL NECROLYSIS [None]
